FAERS Safety Report 17910037 (Version 1)
Quarter: 2020Q2

REPORT INFORMATION
  Report Type: Report from Study
  Country: JP (occurrence: JP)
  Receive Date: 20200617
  Receipt Date: 20200617
  Transmission Date: 20200714
  Serious: Yes (Hospitalization)
  Sender: FDA-Public Use
  Company Number: JP-B.I. PHARMACEUTICALS,INC./RIDGEFIELD-2020-BI-029440

PATIENT
  Age: 69 Year
  Sex: Female

DRUGS (2)
  1. AMANTADINE. [Concomitant]
     Active Substance: AMANTADINE HYDROCHLORIDE
     Indication: PRODUCT USED FOR UNKNOWN INDICATION
     Route: 065
  2. PRAMIPEXOLE. [Suspect]
     Active Substance: PRAMIPEXOLE
     Indication: PARKINSON^S DISEASE
     Route: 048

REACTIONS (6)
  - Speech disorder [Unknown]
  - Movement disorder [Not Recovered/Not Resolved]
  - Chorea [Not Recovered/Not Resolved]
  - Torticollis [Not Recovered/Not Resolved]
  - Neck pain [Unknown]
  - Dysphagia [Unknown]
